FAERS Safety Report 12908657 (Version 1)
Quarter: 2016Q4

REPORT INFORMATION
  Report Type: Report from Study
  Country: UG (occurrence: UG)
  Receive Date: 20161103
  Receipt Date: 20161103
  Transmission Date: 20170207
  Serious: Yes (Death, Life-Threatening, Hospitalization, Other)
  Sender: FDA-Public Use
  Company Number: UG-GILEAD-2016-0241099

PATIENT
  Age: 54 Year
  Sex: Female
  Weight: 79 kg

DRUGS (8)
  1. LACTULOSE. [Concomitant]
     Active Substance: LACTULOSE
  2. HYDROCHLOROTHIAZIDE W/LOSARTAN POTASSIUM [Concomitant]
     Active Substance: HYDROCHLOROTHIAZIDE\LOSARTAN POTASSIUM
     Dosage: 62.5 MG, UNK
  3. SULFAMETHOXAZOLE AND TRIMETHOPRIM [Concomitant]
     Active Substance: SULFAMETHOXAZOLE\TRIMETHOPRIM
     Indication: PROPHYLAXIS
     Dosage: 960 MG, QD
  4. BENDROFLUMETHIAZIDE [Concomitant]
     Active Substance: BENDROFLUMETHIAZIDE
     Dosage: 5 MG, QD
     Dates: start: 201411, end: 20160928
  5. SIMEPAR [Concomitant]
  6. NIFEDIPINE. [Concomitant]
     Active Substance: NIFEDIPINE
     Dosage: 20 MG, UNK
     Dates: start: 201411, end: 20160928
  7. EFAVIRENZ/EMTRICITABINE/TENOFOVIR DISOPROXIL FUMARATE [Suspect]
     Active Substance: EFAVIRENZ\EMTRICITABINE\TENOFOVIR DISOPROXIL FUMARATE
     Indication: HIV INFECTION
     Dosage: 1 DF, QD
     Route: 048
     Dates: start: 20160215, end: 20160928
  8. CEFIXIME. [Concomitant]
     Active Substance: CEFIXIME

REACTIONS (1)
  - Hepatic encephalopathy [Fatal]

NARRATIVE: CASE EVENT DATE: 20161009
